FAERS Safety Report 11706575 (Version 3)
Quarter: 2015Q4

REPORT INFORMATION
  Report Type: Report from Study
  Country: US (occurrence: US)
  Receive Date: 20151106
  Receipt Date: 20151123
  Transmission Date: 20160304
  Serious: Yes (Death, Hospitalization)
  Sender: FDA-Public Use
  Company Number: US-JNJFOC-20151104056

PATIENT
  Age: 70 Year
  Sex: Female

DRUGS (10)
  1. IMBRUVICA [Suspect]
     Active Substance: IBRUTINIB
     Indication: ACUTE LYMPHOCYTIC LEUKAEMIA
     Route: 048
  2. ZOCOR [Concomitant]
     Active Substance: SIMVASTATIN
  3. AUGMENTIN-DUO [Concomitant]
  4. PROMETHAZINE WITH CODEINE [Concomitant]
     Active Substance: CODEINE PHOSPHATE\PROMETHAZINE HYDROCHLORIDE
  5. ATENOLOL. [Concomitant]
     Active Substance: ATENOLOL
  6. FLUOROURACIL. [Concomitant]
     Active Substance: FLUOROURACIL
  7. LIPITOR [Concomitant]
     Active Substance: ATORVASTATIN CALCIUM
  8. ACYCLOVIR. [Concomitant]
     Active Substance: ACYCLOVIR
  9. MULTIVITAMINS [Concomitant]
     Active Substance: VITAMINS
  10. HYDROCHLOROTHIAZIDE WITH TRIAMTERENE [Concomitant]
     Active Substance: HYDROCHLOROTHIAZIDE\TRIAMTERENE

REACTIONS (4)
  - Death [Fatal]
  - Intracardiac mass [Unknown]
  - Off label use [Unknown]
  - Brain mass [Unknown]

NARRATIVE: CASE EVENT DATE: 201510
